FAERS Safety Report 6528577-0 (Version None)
Quarter: 2010Q1

REPORT INFORMATION
  Report Type: 
  Country: None (occurrence: None)
  Receive Date: 20100105
  Receipt Date: 20100105
  Transmission Date: 20100710
  Serious: Yes (Other)
  Sender: FDA-Public Use
  Company Number: None

PATIENT
  Age: 25 Year
  Sex: Female
  Weight: 56.6996 kg

DRUGS (1)
  1. DURAGESIC-25 [Suspect]
     Indication: NEURALGIA
     Dosage: 25MCG PATCH EVERY 72 HRS TRANSDERMAL
     Route: 062
     Dates: start: 20091015, end: 20091230

REACTIONS (6)
  - DEVICE INEFFECTIVE [None]
  - DEVICE LEAKAGE [None]
  - DRUG INEFFECTIVE [None]
  - MALAISE [None]
  - PRODUCT MEASURED POTENCY ISSUE [None]
  - PRODUCT QUALITY ISSUE [None]
